FAERS Safety Report 6795991-8 (Version None)
Quarter: 2010Q2

REPORT INFORMATION
  Report Type: 
  Country: None (occurrence: None)
  Receive Date: 20100625
  Receipt Date: 20100614
  Transmission Date: 20101027
  Serious: Yes (Disabling, Other)
  Sender: FDA-Public Use
  Company Number: PHHY2009FR20369

PATIENT
  Sex: Female

DRUGS (7)
  1. ZOMETA [Suspect]
     Indication: OSTEOPOROSIS
     Dosage: 4 MG, UNK
     Dates: start: 20061016, end: 20061116
  2. ZOMETA [Suspect]
     Dosage: 4 MG, UNK
     Dates: start: 20071130, end: 20071130
  3. FORTEO [Suspect]
     Dosage: UNK
     Dates: start: 20050601, end: 20060501
  4. ACTONEL [Suspect]
  5. DAFALGAN [Concomitant]
     Dosage: 4 GM DAILY
  6. LIDOCAINE [Concomitant]
  7. RIVOTRIL [Concomitant]

REACTIONS (7)
  - ANKLE FRACTURE [None]
  - ARTICULAR CALCIFICATION [None]
  - BONE DISORDER [None]
  - BONE PAIN [None]
  - GAIT DISTURBANCE [None]
  - HYPERAESTHESIA [None]
  - TENDONITIS [None]
